FAERS Safety Report 22531402 (Version 1)
Quarter: 2023Q2

REPORT INFORMATION
  Report Type: Spontaneous
  Country: US (occurrence: US)
  Receive Date: 20230607
  Receipt Date: 20230607
  Transmission Date: 20230722
  Serious: Yes (Hospitalization, Other)
  Sender: FDA-Public Use
  Company Number: US-TORRENT-00012679

PATIENT
  Age: 35 Year
  Sex: Male

DRUGS (2)
  1. RISPERIDONE [Interacting]
     Active Substance: RISPERIDONE
     Indication: Antipsychotic therapy
     Dosage: NIGHTLY AT BEDTIME
     Route: 048
  2. HYDROXYZINE [Interacting]
     Active Substance: HYDROXYZINE HYDROCHLORIDE
     Indication: Anxiety
     Dosage: 50 MG NIGHTLY
     Route: 048

REACTIONS (2)
  - Priapism [Recovered/Resolved]
  - Drug interaction [Unknown]
